FAERS Safety Report 4540179-4 (Version None)
Quarter: 2004Q4

REPORT INFORMATION
  Report Type: 
  Country: None (occurrence: None)
  Receive Date: 20041222
  Receipt Date: 20041214
  Transmission Date: 20050328
  Serious: Yes (Other)
  Sender: FDA-Public Use
  Company Number: DE-2004-033028

PATIENT
  Age: 29 Year
  Sex: Female

DRUGS (1)
  1. MIRENA [Suspect]
     Dosage: 20 UG/DAY, CONT, INTRA-UTERINE
     Route: 015
     Dates: start: 20040527, end: 20040927

REACTIONS (7)
  - ACNE [None]
  - BACK PAIN [None]
  - FEELING HOT [None]
  - HEART RATE INCREASED [None]
  - METRORRHAGIA [None]
  - TRI-IODOTHYRONINE INCREASED [None]
  - UTERINE CONTRACTIONS ABNORMAL [None]
